FAERS Safety Report 9718413 (Version 1)
Quarter: 2013Q4

REPORT INFORMATION
  Report Type: Spontaneous
  Country: US (occurrence: US)
  Receive Date: 20131125
  Receipt Date: 20131125
  Transmission Date: 20140711
  Serious: No
  Sender: FDA-Public Use
  Company Number: US-VIVUS-2013V1000602

PATIENT
  Age: 49 Year
  Sex: Female
  Weight: 114.41 kg

DRUGS (4)
  1. QSYMIA 7.5MG/46MG [Suspect]
     Indication: OBESITY
     Route: 048
     Dates: start: 20130706, end: 20130808
  2. LEVOCETIRIZINE [Concomitant]
     Indication: PRODUCT USED FOR UNKNOWN INDICATION
     Route: 048
  3. DICLOFENAC [Concomitant]
     Indication: PRODUCT USED FOR UNKNOWN INDICATION
     Route: 048
  4. ARMOUR THYROID [Concomitant]
     Indication: PRODUCT USED FOR UNKNOWN INDICATION
     Route: 048

REACTIONS (2)
  - Flatulence [Unknown]
  - Constipation [Unknown]
